FAERS Safety Report 18927863 (Version 1)
Quarter: 2021Q1

REPORT INFORMATION
  Report Type: Spontaneous
  Country: US (occurrence: US)
  Receive Date: 20210223
  Receipt Date: 20210223
  Transmission Date: 20210420
  Serious: No
  Sender: FDA-Public Use
  Company Number: US-FERRINGPH-2020FE04976

PATIENT
  Age: 34 Year
  Sex: Female

DRUGS (1)
  1. STIMATE [Suspect]
     Active Substance: DESMOPRESSIN ACETATE
     Indication: PSORIASIS
     Dosage: INSTILL 1 SPRAY IN EACH NOSTRIL EVERY 24 HOURS FOR A MAXIMUM 3 CONSECUTIVE DAYS AS NEEDED
     Route: 045

REACTIONS (3)
  - Recalled product administered [Unknown]
  - Out of specification product use [Unknown]
  - Product use in unapproved indication [Unknown]

NARRATIVE: CASE EVENT DATE: 202003
